FAERS Safety Report 23539372 (Version 2)
Quarter: 2024Q1

REPORT INFORMATION
  Report Type: Spontaneous
  Country: US (occurrence: US)
  Receive Date: 20240219
  Receipt Date: 20240220
  Transmission Date: 20240410
  Serious: Yes (Other)
  Sender: FDA-Public Use
  Company Number: US-ABBVIE-5644716

PATIENT
  Sex: Female

DRUGS (2)
  1. ESTRACE [Suspect]
     Active Substance: ESTRADIOL
     Indication: Vulvovaginal dryness
     Route: 065
  2. ESTRACE [Suspect]
     Active Substance: ESTRADIOL
     Route: 065

REACTIONS (6)
  - Limb operation [Unknown]
  - Fatigue [Unknown]
  - Gait inability [Unknown]
  - Dysuria [Unknown]
  - Insomnia [Unknown]
  - Expired product administered [Unknown]
